FAERS Safety Report 9524051 (Version 1)
Quarter: 2013Q3

REPORT INFORMATION
  Report Type: Spontaneous
  Country: US (occurrence: None)
  Receive Date: 20130912
  Receipt Date: 20130912
  Transmission Date: 20140515
  Serious: Yes (Hospitalization)
  Sender: FDA-Public Use
  Company Number: None

PATIENT
  Age: 65 Year
  Sex: Male
  Weight: 71.4 kg

DRUGS (1)
  1. SULFAMETHOXAZOLE/TRIMETHOPRIM [Suspect]
     Indication: STAPHYLOCOCCAL ABSCESS
     Dosage: 800/160 MG  BID  PO
     Route: 048
     Dates: start: 20130511, end: 20130518

REACTIONS (4)
  - Hyperkalaemia [None]
  - Muscle spasms [None]
  - Muscular weakness [None]
  - Drug interaction [None]
